FAERS Safety Report 4625476-6 (Version None)
Quarter: 2005Q2

REPORT INFORMATION
  Report Type: 
  Country: None (occurrence: None)
  Receive Date: 20050401
  Receipt Date: 20050304
  Transmission Date: 20051028
  Serious: Yes (Other)
  Sender: FDA-Public Use
  Company Number: PHNR2005AU00609

PATIENT
  Age: 33 Year
  Sex: Male

DRUGS (5)
  1. RECTOGESIC [Concomitant]
  2. XANAX [Concomitant]
     Dosage: 4-6 MG
  3. SERETIDE [Concomitant]
  4. PROCTOSEDYL [Concomitant]
  5. VOLTAREN [Suspect]
     Dosage: 50 MG, ONCE/SINGLE
     Route: 048
     Dates: start: 20050211, end: 20050211

REACTIONS (9)
  - AGITATION [None]
  - DISSOCIATION [None]
  - GROIN PAIN [None]
  - HALLUCINATION [None]
  - INFECTION [None]
  - NERVOUS SYSTEM DISORDER [None]
  - SEDATION [None]
  - SENSORY LOSS [None]
  - WOUND COMPLICATION [None]
